FAERS Safety Report 10483664 (Version 1)
Quarter: 2014Q3

REPORT INFORMATION
  Report Type: Spontaneous
  Country: US (occurrence: None)
  Receive Date: 20140929
  Receipt Date: 20140929
  Transmission Date: 20150326
  Serious: No
  Sender: FDA-Public Use
  Company Number: None

PATIENT
  Age: 40 Year
  Sex: Female
  Weight: 80 kg

DRUGS (1)
  1. XARELTO [Suspect]
     Active Substance: RIVAROXABAN
     Indication: DEEP VEIN THROMBOSIS
     Dosage: 1 PILL, ONCE DAILY, TAKEN BY MOUTH, 3-4 MONTHS.
     Route: 048

REACTIONS (5)
  - Peripheral swelling [None]
  - Menorrhagia [None]
  - Impaired healing [None]
  - Acne [None]
  - Swelling face [None]
